FAERS Safety Report 13137393 (Version 2)
Quarter: 2017Q1

REPORT INFORMATION
  Report Type: Spontaneous
  Country: PT (occurrence: PT)
  Receive Date: 20170123
  Receipt Date: 20170201
  Transmission Date: 20170428
  Serious: Yes (Hospitalization, Other)
  Sender: FDA-Public Use
  Company Number: PT-009507513-1701PRT009420

PATIENT
  Age: 70 Year
  Sex: Male

DRUGS (3)
  1. EZETROL [Suspect]
     Active Substance: EZETIMIBE
     Indication: HYPERCHOLESTEROLAEMIA
     Dosage: 1 TABLET/DAY
     Route: 048
     Dates: start: 201701, end: 201701
  2. SOMAZINA [Suspect]
     Active Substance: CITICOLINE
     Indication: MEMORY IMPAIRMENT
     Dosage: 1000 MG, QD
     Dates: start: 201701, end: 201701
  3. NORVASC [Suspect]
     Active Substance: AMLODIPINE BESYLATE
     Dosage: UNK

REACTIONS (2)
  - Loss of consciousness [Recovered/Resolved]
  - Generalised oedema [Unknown]

NARRATIVE: CASE EVENT DATE: 201701
